FAERS Safety Report 21683538 (Version 1)
Quarter: 2022Q4

REPORT INFORMATION
  Report Type: Spontaneous
  Country: US (occurrence: None)
  Receive Date: 20221202
  Receipt Date: 20221202
  Transmission Date: 20230112
  Serious: Yes (Hospitalization)
  Sender: FDA-Public Use
  Company Number: None

PATIENT
  Sex: Female

DRUGS (26)
  1. HUMIRA [Suspect]
     Active Substance: ADALIMUMAB
     Indication: Psoriatic arthropathy
     Dosage: OTHER QUANTITY : 40MG/0.4ML;?FREQUENCY : WEEKLY;?
     Route: 058
     Dates: start: 20210721
  2. ACAMPRO CAL TAB [Concomitant]
  3. ACETAMIN TAB [Concomitant]
  4. AIRDUO DGHLR INH [Concomitant]
  5. ANTACID CHW [Concomitant]
  6. ASPERCREME CRE [Concomitant]
  7. BUSPIRONE TAB [Concomitant]
  8. CARAFATE TAB [Concomitant]
  9. CLOBETASOL OIN [Concomitant]
  10. LAMOTRIGINE [Concomitant]
     Active Substance: LAMOTRIGINE
  11. LORATADINE TAB [Concomitant]
  12. LYRICA CAP [Concomitant]
  13. METFORMIN TAB ER [Concomitant]
  14. METHOCARBAM TAB [Concomitant]
  15. METOPROL TAR TAB [Concomitant]
  16. OMEPRAZOLE TAB [Concomitant]
  17. PRAZOSIN HCL CAP [Concomitant]
  18. PULMICORT INH [Concomitant]
  19. SINGULAIR TAB [Concomitant]
  20. TOPAMAX TAB [Concomitant]
  21. TRAZODONE TAB [Concomitant]
  22. VITAMIN D3 CAP [Concomitant]
  23. VRAYLAR CAP [Concomitant]
  24. XOPENEX HFA AER [Concomitant]
  25. ZANAFLEX CAP [Concomitant]
  26. ZOFRAN TAB [Concomitant]

REACTIONS (2)
  - Condition aggravated [None]
  - Pain [None]
